FAERS Safety Report 5129924-7 (Version None)
Quarter: 2006Q4

REPORT INFORMATION
  Report Type: 
  Country: None (occurrence: None)
  Receive Date: 20061012
  Receipt Date: 20060921
  Transmission Date: 20070319
  Serious: Yes (Hospitalization, Other)
  Sender: FDA-Public Use
  Company Number: HQWYE766008AUG05

PATIENT
  Age: 76 Year
  Sex: Female

DRUGS (3)
  1. TEMSIROLIMUS (TEMSIROLIMUS, TABLET) [Suspect]
     Indication: BREAST CANCER
     Dosage: 30 MG D1-D5 ORAL
     Route: 048
     Dates: start: 20050602, end: 20060108
  2. LETROZOLE/TEMSIROLIMUS (LETROZOLE/TEMSIROLIMUS) [Concomitant]
  3. LISINOPRIL/HYDROCHLOROTHIAZIDE (LISINOPRIL/HYDROCHLOROTHIAZIDE) [Concomitant]

REACTIONS (9)
  - BAND NEUTROPHIL PERCENTAGE INCREASED [None]
  - CARDIAC DISORDER [None]
  - FATIGUE [None]
  - HAEMOGLOBIN DECREASED [None]
  - INFECTION [None]
  - LOBAR PNEUMONIA [None]
  - MONOCYTE PERCENTAGE DECREASED [None]
  - POISONING [None]
  - SPUTUM DISCOLOURED [None]
